FAERS Safety Report 24888492 (Version 1)
Quarter: 2025Q1

REPORT INFORMATION
  Report Type: Spontaneous
  Country: JP (occurrence: JP)
  Receive Date: 20250127
  Receipt Date: 20250127
  Transmission Date: 20250409
  Serious: Yes (Disabling, Other)
  Sender: ACCORD
  Company Number: JP-MLMSERVICE-20250114-PI346477-00218-1

PATIENT
  Age: 36 Year
  Sex: Male

DRUGS (6)
  1. CISPLATIN [Suspect]
     Active Substance: CISPLATIN
     Indication: Bone giant cell tumour malignant
  2. METHOTREXATE [Suspect]
     Active Substance: METHOTREXATE
     Indication: Bone giant cell tumour malignant
  3. DOXORUBICIN [Suspect]
     Active Substance: DOXORUBICIN
     Indication: Bone giant cell tumour malignant
  4. DOXORUBICIN [Suspect]
     Active Substance: DOXORUBICIN
     Indication: Disease recurrence
  5. CISPLATIN [Suspect]
     Active Substance: CISPLATIN
     Indication: Disease recurrence
  6. METHOTREXATE [Suspect]
     Active Substance: METHOTREXATE
     Indication: Disease recurrence

REACTIONS (3)
  - Bone formation decreased [Recovering/Resolving]
  - Device failure [Recovered/Resolved]
  - Fall [Recovering/Resolving]
